FAERS Safety Report 9092581 (Version 1)
Quarter: 2013Q1

REPORT INFORMATION
  Report Type: Spontaneous
  Country: US (occurrence: US)
  Receive Date: 20130131
  Receipt Date: 20130131
  Transmission Date: 20140127
  Serious: Yes (Death)
  Sender: FDA-Public Use
  Company Number: US-B.I. PHARMACEUTICALS,INC./RIDGEFIELD-2013-BI-02569YA

PATIENT
  Age: 63 Year
  Sex: Male

DRUGS (7)
  1. TAMSULOSIN CAPSULES [Suspect]
     Route: 048
  2. VALPROIC ACID [Suspect]
     Route: 048
  3. VERAPAMIL [Suspect]
     Route: 048
  4. MIRTAZAPINE [Suspect]
     Route: 048
  5. ZOLPIDEM [Suspect]
     Route: 048
  6. TOLTERODINE [Suspect]
     Route: 048
  7. BUPROPION [Suspect]
     Route: 048

REACTIONS (1)
  - Completed suicide [Fatal]
